FAERS Safety Report 6252753-8 (Version None)
Quarter: 2009Q2

REPORT INFORMATION
  Report Type: 
  Country: None (occurrence: None)
  Receive Date: 20090629
  Receipt Date: 20090629
  Transmission Date: 20091009
  Serious: No
  Sender: FDA-Public Use
  Company Number: None

PATIENT
  Age: 59 Year
  Sex: Female
  Weight: 63.5036 kg

DRUGS (1)
  1. ZICAM GEL [Suspect]
     Indication: NASOPHARYNGITIS
     Dosage: AS DIRECTED NASAL
     Route: 045
     Dates: start: 20090529, end: 20090530

REACTIONS (2)
  - ANOSMIA [None]
  - HYPOGEUSIA [None]
